FAERS Safety Report 18629716 (Version 1)
Quarter: 2020Q4

REPORT INFORMATION
  Report Type: Spontaneous
  Country: GB (occurrence: GB)
  Receive Date: 20201217
  Receipt Date: 20201217
  Transmission Date: 20210114
  Serious: Yes (Other)
  Sender: FDA-Public Use
  Company Number: NVSC2020GB332303

PATIENT
  Age: 1 Year
  Sex: Male
  Weight: 8 kg

DRUGS (3)
  1. AMOXICILLIN. [Suspect]
     Active Substance: AMOXICILLIN
     Indication: PRODUCT USED FOR UNKNOWN INDICATION
     Dosage: UNK
     Route: 048
     Dates: start: 20201201
  2. ERYTHROMYCIN ETHYLSUCCINATE. [Concomitant]
     Active Substance: ERYTHROMYCIN ETHYLSUCCINATE
     Indication: PRODUCT USED FOR UNKNOWN INDICATION
     Dosage: 20 ML, QD
     Route: 048
     Dates: start: 20201201
  3. PHENOXYMETHYLPENICILLIN [Concomitant]
     Active Substance: PENICILLIN V
     Indication: PRODUCT USED FOR UNKNOWN INDICATION
     Dosage: 20 ML, QD
     Route: 048
     Dates: start: 20201113, end: 20201123

REACTIONS (1)
  - Malaise [Recovered/Resolved]

NARRATIVE: CASE EVENT DATE: 20201201
